FAERS Safety Report 5787450-6 (Version None)
Quarter: 2008Q2

REPORT INFORMATION
  Report Type: 
  Country: None (occurrence: None)
  Receive Date: 20080625
  Receipt Date: 20080618
  Transmission Date: 20081010
  Serious: Yes (Hospitalization, Other)
  Sender: FDA-Public Use
  Company Number: DE-BRISTOL-MYERS SQUIBB COMPANY-13998406

PATIENT
  Age: 63 Year
  Sex: Male

DRUGS (1)
  1. ORENCIA [Suspect]
     Indication: POLYARTHRITIS
     Route: 042

REACTIONS (3)
  - BALANITIS [None]
  - ERYTHEMA NODOSUM [None]
  - VASCULITIS [None]
